FAERS Safety Report 6060899-2 (Version None)
Quarter: 2009Q1

REPORT INFORMATION
  Report Type: 
  Country: None (occurrence: None)
  Receive Date: 20090202
  Receipt Date: 20090122
  Transmission Date: 20090719
  Serious: Yes (Life-Threatening, Hospitalization, Disabling)
  Sender: FDA-Public Use
  Company Number: JP-BAYER-200813177BYL

PATIENT
  Age: 78 Year
  Sex: Male
  Weight: 60 kg

DRUGS (17)
  1. NEXAVAR [Suspect]
     Indication: RENAL CELL CARCINOMA STAGE IV
     Dosage: TOTAL DAILY DOSE: 800 MG  UNIT DOSE: 200 MG
     Route: 048
     Dates: start: 20081204, end: 20081215
  2. MAGMITT [Concomitant]
     Indication: CONSTIPATION
     Route: 048
     Dates: start: 20081204
  3. MYSLEE [Concomitant]
     Indication: INSOMNIA
     Route: 048
     Dates: start: 20081204
  4. SELTOUCH [Concomitant]
     Indication: BACK PAIN
     Route: 062
     Dates: start: 20081210, end: 20081214
  5. MOHRUS TAPE [Concomitant]
     Indication: BACK PAIN
     Route: 062
     Dates: start: 20081215
  6. ASPIRIN [Concomitant]
     Dosage: UNIT DOSE: 100 MG
     Route: 048
     Dates: start: 20081216
  7. HEPARIN NA LOCK [Concomitant]
     Indication: ELECTIVE PROCEDURE
     Route: 042
     Dates: start: 20081216
  8. FLUMARIN [Concomitant]
     Route: 042
     Dates: start: 20081221, end: 20081224
  9. YODEL-S [Concomitant]
     Indication: CONSTIPATION
     Route: 048
     Dates: start: 20081225, end: 20081225
  10. ROHYPNOL [Concomitant]
     Indication: INSOMNIA
     Route: 048
     Dates: start: 20081227
  11. DEPAS [Concomitant]
     Indication: INSOMNIA
     Route: 048
     Dates: start: 20081229
  12. MEVALOTIN [Concomitant]
     Indication: HYPERLIPIDAEMIA
     Route: 048
     Dates: start: 20081231
  13. LENDORMIN D [Concomitant]
     Indication: INSOMNIA
     Route: 048
     Dates: start: 20090102, end: 20090101
  14. AMOBAN [Concomitant]
     Indication: INSOMNIA
     Route: 048
     Dates: start: 20090104
  15. SENIRAN [Concomitant]
     Indication: INSOMNIA
     Route: 054
     Dates: start: 20090106
  16. SERENACE [Concomitant]
     Indication: NEUROSIS
     Route: 065
     Dates: start: 20090106
  17. ATARAX [Concomitant]
     Indication: INSOMNIA
     Route: 065
     Dates: start: 20090106

REACTIONS (6)
  - ARRHYTHMIA [None]
  - COORDINATION ABNORMAL [None]
  - DIARRHOEA [None]
  - DYSPHONIA [None]
  - GASTROINTESTINAL HAEMORRHAGE [None]
  - MYOCARDIAL INFARCTION [None]
